FAERS Safety Report 7627981-7 (Version None)
Quarter: 2011Q3

REPORT INFORMATION
  Report Type: 
  Country: None (occurrence: None)
  Receive Date: 20110722
  Receipt Date: 20110713
  Transmission Date: 20111222
  Serious: Yes (Hospitalization)
  Sender: FDA-Public Use
  Company Number: 191968

PATIENT
  Age: 49 Year
  Sex: Female
  Weight: 65 kg

DRUGS (5)
  1. AVONEX [Suspect]
     Route: 030
     Dates: start: 19980601, end: 20030101
  2. VITAMIN TAB [Concomitant]
     Indication: MULTIPLE SCLEROSIS
  3. LEVOXYL [Concomitant]
     Indication: HYPOTHYROIDISM
     Dates: start: 19810101
  4. AVONEX [Suspect]
     Indication: MULTIPLE SCLEROSIS
     Route: 030
     Dates: start: 20030101
  5. PREMARIN [Concomitant]
     Indication: HORMONE REPLACEMENT THERAPY
     Dates: start: 20020101

REACTIONS (12)
  - ATRIAL FIBRILLATION [None]
  - MUSCLE STRAIN [None]
  - PARAESTHESIA [None]
  - HYPERTENSION [None]
  - INTERVERTEBRAL DISC PROTRUSION [None]
  - MYALGIA [None]
  - PAIN [None]
  - SPINAL CORD COMPRESSION [None]
  - HEART RATE INCREASED [None]
  - OPERATIVE HAEMORRHAGE [None]
  - HEADACHE [None]
  - CERVICAL SPINAL STENOSIS [None]
